FAERS Safety Report 15023046 (Version 1)
Quarter: 2018Q2

REPORT INFORMATION
  Report Type: Spontaneous
  Country: US (occurrence: US)
  Receive Date: 20180602
  Receipt Date: 20180602
  Transmission Date: 20180711
  Serious: No
  Sender: FDA-Public Use
  Company Number: None

PATIENT
  Age: 57 Year
  Sex: Female
  Weight: 56.25 kg

DRUGS (5)
  1. LOSARTAN POTASSIUM. [Concomitant]
     Active Substance: LOSARTAN POTASSIUM
  2. LEVOTHYROXIN 50 MCG TAB SAN [Suspect]
     Active Substance: LEVOTHYROXINE
     Indication: THYROID HORMONES DECREASED
     Dosage: ?          QUANTITY:1 TABLET(S);?
     Route: 048
     Dates: start: 20180507, end: 20180601
  3. SYMBICORT [Concomitant]
     Active Substance: BUDESONIDE\FORMOTEROL FUMARATE DIHYDRATE
  4. PROVENTIL [Concomitant]
     Active Substance: ALBUTEROL
  5. VITAMIN B12 [Concomitant]
     Active Substance: CYANOCOBALAMIN

REACTIONS (1)
  - Contusion [None]

NARRATIVE: CASE EVENT DATE: 20180601
